FAERS Safety Report 5171350-9 (Version None)
Quarter: 2006Q4

REPORT INFORMATION
  Report Type: 
  Country: None (occurrence: None)
  Receive Date: 20061208
  Receipt Date: 20061208
  Transmission Date: 20070319
  Serious: No
  Sender: FDA-Public Use
  Company Number: None

PATIENT
  Sex: Female

DRUGS (2)
  1. ROZEREM [Suspect]
     Indication: INSOMNIA
     Dosage: 8 MG Q HS PO
     Route: 048
     Dates: start: 20061017, end: 20061023
  2. MELATONIN [Suspect]
     Indication: INSOMNIA
     Dosage: 9 MG Q HS PO
     Route: 048
     Dates: start: 20061013, end: 20061023

REACTIONS (1)
  - PRURITUS [None]
